FAERS Safety Report 5723185-3 (Version None)
Quarter: 2008Q2

REPORT INFORMATION
  Report Type: 
  Country: None (occurrence: None)
  Receive Date: 20080428
  Receipt Date: 20080421
  Transmission Date: 20081010
  Serious: Yes (Other)
  Sender: FDA-Public Use
  Company Number: 2008SP000811

PATIENT
  Age: 45 Year
  Sex: Female

DRUGS (9)
  1. XOPENEX [Suspect]
     Indication: ASTHMA
     Dosage: 1.25 MG/3ML; INHALATION
     Route: 055
     Dates: start: 20080301, end: 20080401
  2. XOPENEX HFA [Suspect]
     Indication: ASTHMA
     Dosage: 90 UG; INHALATION
     Route: 055
     Dates: start: 20080301, end: 20080401
  3. SINGULAIR [Concomitant]
  4. HYDROCHLOROTHIAZIDE [Concomitant]
  5. POTASSIUM CHLORIDE [Concomitant]
  6. CALCIUM [Concomitant]
  7. FISH OIL [Concomitant]
  8. ALBUTEROL [Concomitant]
  9. ALUPENT [Concomitant]

REACTIONS (10)
  - ANGINA PECTORIS [None]
  - CHEST DISCOMFORT [None]
  - DIZZINESS [None]
  - DRY MOUTH [None]
  - DYSPNOEA [None]
  - INCORRECT DOSE ADMINISTERED [None]
  - OESOPHAGEAL OEDEMA [None]
  - PALPITATIONS [None]
  - REFUSAL OF TREATMENT BY PATIENT [None]
  - SELF-MEDICATION [None]
